FAERS Safety Report 9452190 (Version 2)
Quarter: 2013Q3

REPORT INFORMATION
  Report Type: Spontaneous
  Country: IT (occurrence: IT)
  Receive Date: 20130812
  Receipt Date: 20130923
  Transmission Date: 20140515
  Serious: Yes (Hospitalization, Other)
  Sender: FDA-Public Use
  Company Number: IT-009507513-1308ITA000696

PATIENT
  Age: 58 Year
  Sex: Male
  Weight: 84 kg

DRUGS (3)
  1. BOCEPREVIR [Suspect]
     Indication: CHRONIC HEPATITIS C
     Dosage: 2400 MG, DAILY
     Route: 048
     Dates: start: 20130325, end: 20130425
  2. PEGASYS [Suspect]
     Indication: CHRONIC HEPATITIS C
     Dosage: 1800 MCG WEEKLY
     Route: 058
     Dates: start: 20130325, end: 20130425
  3. COPEGUS [Suspect]
     Indication: CHRONIC HEPATITIS C
     Dosage: DAILY DOSE: 1200 MG
     Route: 048
     Dates: start: 20130325, end: 20130425

REACTIONS (2)
  - Bone marrow failure [Recovered/Resolved]
  - Syncope [Recovered/Resolved]
